FAERS Safety Report 14243460 (Version 2)
Quarter: 2018Q1

REPORT INFORMATION
  Report Type: Spontaneous
  Country: US (occurrence: US)
  Receive Date: 20171201
  Receipt Date: 20180201
  Transmission Date: 20180508
  Serious: Yes (Hospitalization, Other)
  Sender: FDA-Public Use
  Company Number: US-BAYER-2017-222082

PATIENT
  Age: 57 Year
  Sex: Male

DRUGS (10)
  1. SIMVASTATIN. [Concomitant]
     Active Substance: SIMVASTATIN
  2. TESTOSTERONE. [Concomitant]
     Active Substance: TESTOSTERONE
  3. CIPRO [Suspect]
     Active Substance: CIPROFLOXACIN HYDROCHLORIDE
     Indication: CELLULITIS
  4. LOSARTAN POTASSIUM W/HYDROCHLOROTHIAZIDE [Concomitant]
     Active Substance: HYDROCHLOROTHIAZIDE\LOSARTAN POTASSIUM
  5. GABAPENTIN. [Concomitant]
     Active Substance: GABAPENTIN
     Indication: NEURALGIA
  6. SUMATRIPTAN. [Concomitant]
     Active Substance: SUMATRIPTAN
  7. TRIAMTERENE. [Concomitant]
     Active Substance: TRIAMTERENE
  8. AVELOX [Suspect]
     Active Substance: MOXIFLOXACIN HYDROCHLORIDE
  9. OXYCODONE [Concomitant]
     Active Substance: OXYCODONE
     Indication: NEURALGIA
  10. BUPROPION. [Concomitant]
     Active Substance: BUPROPION

REACTIONS (2)
  - Depression [Not Recovered/Not Resolved]
  - Neuropathy peripheral [None]

NARRATIVE: CASE EVENT DATE: 20010417
